FAERS Safety Report 4734962-X (Version None)
Quarter: 2005Q3

REPORT INFORMATION
  Report Type: 
  Country: None (occurrence: None)
  Receive Date: 20050804
  Receipt Date: 20050329
  Transmission Date: 20060218
  Serious: Yes (Life-Threatening)
  Sender: FDA-Public Use
  Company Number: ES-BOEHRINGER INGELHEIM PHARMACEUTICALS, INC.-2005-ES-00090ES

PATIENT
  Age: 82 Year
  Sex: Female

DRUGS (5)
  1. MOVALIS 7.5MG [Suspect]
     Indication: ARTHROPATHY
     Route: 048
  2. DAFLON [Concomitant]
     Route: 048
  3. SOMAZINA [Concomitant]
     Route: 048
  4. SALIDUR [Concomitant]
     Dosage: FUROSEMIDE XANTINOL 77,6MG+TRIAMTERENE 25MG
     Route: 048
  5. STILNOX [Concomitant]
     Route: 048

REACTIONS (3)
  - ANAEMIA [None]
  - DUODENAL ULCER HAEMORRHAGE [None]
  - UPPER GASTROINTESTINAL HAEMORRHAGE [None]
